FAERS Safety Report 25167891 (Version 3)
Quarter: 2025Q3

REPORT INFORMATION
  Report Type: Spontaneous
  Country: US (occurrence: US)
  Receive Date: 20250407
  Receipt Date: 20250806
  Transmission Date: 20251021
  Serious: No
  Sender: SANOFI AVENTIS
  Company Number: US-SA-2025SA098840

PATIENT
  Age: 83 Year
  Sex: Male
  Weight: 87.73 kg

DRUGS (5)
  1. DUPIXENT [Suspect]
     Active Substance: DUPILUMAB
     Indication: Neurodermatitis
     Route: 058
     Dates: start: 20250329, end: 20250329
  2. DUPIXENT [Suspect]
     Active Substance: DUPILUMAB
     Dosage: 300 MG, QOW
     Route: 058
     Dates: start: 2025
  3. LANTUS [Concomitant]
     Active Substance: INSULIN GLARGINE
  4. BILBERRY [VACCINIUM MYRTILLUS] [Concomitant]
  5. DIETARY SUPPLEMENT\HERBALS [Concomitant]
     Active Substance: DIETARY SUPPLEMENT\HERBALS

REACTIONS (4)
  - Weight decreased [Unknown]
  - Skin lesion [Not Recovered/Not Resolved]
  - Fatigue [Not Recovered/Not Resolved]
  - Incorrect dose administered [Unknown]

NARRATIVE: CASE EVENT DATE: 20250101
